FAERS Safety Report 25140518 (Version 1)
Quarter: 2025Q1

REPORT INFORMATION
  Report Type: Report from Study
  Country: JO (occurrence: JO)
  Receive Date: 20250331
  Receipt Date: 20250331
  Transmission Date: 20250408
  Serious: Yes (Death, Other)
  Sender: ROCHE
  Company Number: JO-ROCHE-10000242684

PATIENT

DRUGS (7)
  1. MYCOPHENOLATE MOFETIL [Suspect]
     Active Substance: MYCOPHENOLATE MOFETIL
     Indication: Prophylaxis against transplant rejection
     Route: 048
  2. AZATHIOPRINE [Suspect]
     Active Substance: AZATHIOPRINE
     Indication: Prophylaxis against transplant rejection
     Route: 065
  3. TACROLIMUS [Suspect]
     Active Substance: TACROLIMUS
     Indication: Prophylaxis against transplant rejection
     Dosage: RECOMMENDED DOSAGE
     Route: 065
  4. TACROLIMUS [Suspect]
     Active Substance: TACROLIMUS
     Route: 065
  5. TACROLIMUS [Suspect]
     Active Substance: TACROLIMUS
     Route: 065
  6. PREDNISOLONE [Suspect]
     Active Substance: PREDNISOLONE
     Indication: Prophylaxis against transplant rejection
     Route: 065
  7. METHYLPREDNISOLONE [Suspect]
     Active Substance: METHYLPREDNISOLONE
     Indication: Prophylaxis against transplant rejection
     Route: 042

REACTIONS (39)
  - Cytomegalovirus infection [Fatal]
  - Candida infection [Fatal]
  - Diarrhoea [Unknown]
  - Constipation [Unknown]
  - Abdominal pain [Unknown]
  - Gastritis viral [Unknown]
  - Gastroenteritis bacterial [Unknown]
  - Hypertension [Unknown]
  - Hypertensive encephalopathy [Unknown]
  - Chest pain [Unknown]
  - Urinary tract infection [Unknown]
  - Pyelonephritis [Unknown]
  - Respiratory tract infection [Unknown]
  - Sepsis [Unknown]
  - Otitis media acute [Unknown]
  - Gingivitis [Unknown]
  - Herpes zoster [Unknown]
  - Herpes simplex [Unknown]
  - Haemophilus infection [Unknown]
  - Varicella zoster virus infection [Unknown]
  - Fungal skin infection [Unknown]
  - Viral skin infection [Unknown]
  - Staphylococcal infection [Unknown]
  - Dermatitis allergic [Unknown]
  - Diabetes mellitus [Fatal]
  - Diabetic ketoacidosis [Unknown]
  - Hyperkalaemia [Unknown]
  - Hypokalaemia [Unknown]
  - Nephropathy toxic [Unknown]
  - Hydronephrosis [Unknown]
  - Anaemia [Unknown]
  - Thrombocytopenia [Unknown]
  - Leukopenia [Unknown]
  - Tremor [Unknown]
  - Psychotic disorder due to a general medical condition [Unknown]
  - Dehydration [Unknown]
  - Visual impairment [Unknown]
  - Oedema peripheral [Unknown]
  - Tooth abscess [Unknown]
